FAERS Safety Report 21990075 (Version 1)
Quarter: 2023Q1

REPORT INFORMATION
  Report Type: Spontaneous
  Country: US (occurrence: None)
  Receive Date: 20230213
  Receipt Date: 20230213
  Transmission Date: 20230418
  Serious: Yes (Hospitalization, Other)
  Sender: FDA-Public Use
  Company Number: None

PATIENT
  Age: 35 Year
  Sex: Female
  Weight: 40.5 kg

DRUGS (4)
  1. HOMEOPATHICS [Suspect]
     Active Substance: HOMEOPATHICS
     Indication: Insomnia
     Dosage: OTHER QUANTITY : 2 TABLET(S);?FREQUENCY : AT BEDTIME;?
  2. CLOMIPRAMINE [Concomitant]
     Active Substance: CLOMIPRAMINE
  3. ABILIFY [Concomitant]
     Active Substance: ARIPIPRAZOLE
  4. VITAMIN B12 [Concomitant]
     Active Substance: CYANOCOBALAMIN

REACTIONS (17)
  - Headache [None]
  - Burning sensation [None]
  - Feeling abnormal [None]
  - Muscle spasms [None]
  - Chest pain [None]
  - Pain in extremity [None]
  - Joint stiffness [None]
  - Dry mouth [None]
  - Tongue discolouration [None]
  - Dry throat [None]
  - Oropharyngeal pain [None]
  - Tongue ulceration [None]
  - Rectal haemorrhage [None]
  - Throat tightness [None]
  - Dyspnoea [None]
  - Nasal discomfort [None]
  - Tremor [None]

NARRATIVE: CASE EVENT DATE: 20221212
